FAERS Safety Report 4830983-7 (Version None)
Quarter: 2005Q4

REPORT INFORMATION
  Report Type: 
  Country: None (occurrence: None)
  Receive Date: 20051114
  Receipt Date: 20051101
  Transmission Date: 20060501
  Serious: Yes (Other)
  Sender: FDA-Public Use
  Company Number: JP_050406280

PATIENT
  Age: 83 Year
  Sex: Female

DRUGS (4)
  1. EVISTA [Suspect]
     Indication: OSTEOPOROSIS POSTMENOPAUSAL
     Dosage: 60 MG / 1 DAY
     Dates: start: 20050107, end: 20050316
  2. ELCITONIN (ECCATONIN) [Concomitant]
  3. STRONGER NOE MINOPHAGEN C [Concomitant]
  4. NEO VITACAIN [Concomitant]

REACTIONS (3)
  - HAEMORRHAGE SUBCUTANEOUS [None]
  - INJECTION SITE HAEMORRHAGE [None]
  - THROMBOCYTOPENIA [None]
